FAERS Safety Report 5181216-6 (Version None)
Quarter: 2006Q4

REPORT INFORMATION
  Report Type: 
  Country: None (occurrence: None)
  Receive Date: 20061218
  Receipt Date: 20061218
  Transmission Date: 20070319
  Serious: Yes (Other)
  Sender: FDA-Public Use
  Company Number: None

PATIENT
  Age: 38 Year
  Sex: Female
  Weight: 88.4514 kg

DRUGS (3)
  1. ACETAMINOPHEN [Suspect]
     Indication: CHILLS
     Dosage: 2 TABLETS   500 MG   WHEN NEEDED  PO  I TOOK 23 OUT OF 24 TABLETS
     Route: 048
     Dates: start: 20061102, end: 20061109
  2. ACETAMINOPHEN [Suspect]
     Indication: PAIN
     Dosage: 2 TABLETS   500 MG   WHEN NEEDED  PO  I TOOK 23 OUT OF 24 TABLETS
     Route: 048
     Dates: start: 20061102, end: 20061109
  3. ACETAMINOPHEN [Suspect]
     Indication: PYREXIA
     Dosage: 2 TABLETS   500 MG   WHEN NEEDED  PO  I TOOK 23 OUT OF 24 TABLETS
     Route: 048
     Dates: start: 20061102, end: 20061109

REACTIONS (6)
  - APHASIA [None]
  - CHOKING [None]
  - DIZZINESS [None]
  - FATIGUE [None]
  - PHARYNGOLARYNGEAL PAIN [None]
  - RESPIRATORY DISORDER [None]
